FAERS Safety Report 8646053 (Version 2)
Quarter: 2012Q4

REPORT INFORMATION
  Report Type: 
  Country: FR (occurrence: FR)
  Receive Date: 20120702
  Receipt Date: 20120926
  Transmission Date: 20130627
  Serious: Yes (Hospitalization, Other)
  Sender: FDA-Public Use
  Company Number: FR-BRISTOL-MYERS SQUIBB COMPANY-16704751

PATIENT
  Age: 79 Year
  Sex: Female

DRUGS (4)
  1. COAPROVEL FILM-COATED TABS 300/12.5 MG [Suspect]
     Indication: HYPERTENSION
     Route: 048
     Dates: end: 20120528
  2. LASILIX [Interacting]
     Dosage: Interrupted on 28May2012
     Route: 048
  3. FLECAINE [Concomitant]
     Indication: ARRHYTHMIA
     Dosage: 2df
Scored Tabs
     Route: 048
     Dates: end: 20120529
  4. FLECTOR [Concomitant]
     Dosage: 1df=2 applications
1 percent, gel
     Route: 003

REACTIONS (3)
  - Renal failure acute [Recovered/Resolved with Sequelae]
  - Hypertension [Unknown]
  - Drug interaction [Unknown]
